FAERS Safety Report 19469410 (Version 1)
Quarter: 2021Q2

REPORT INFORMATION
  Report Type: Spontaneous
  Country: JP (occurrence: JP)
  Receive Date: 20210629
  Receipt Date: 20210629
  Transmission Date: 20210717
  Serious: Yes (Other)
  Sender: FDA-Public Use
  Company Number: JP-ASTELLAS-2021JP012219

PATIENT

DRUGS (3)
  1. XTANDI [Suspect]
     Active Substance: ENZALUTAMIDE
     Indication: PRODUCT USED FOR UNKNOWN INDICATION
     Dosage: UNK UNK, UNKNOWN FREQ., AFTER DINNER
     Route: 048
     Dates: start: 20210608, end: 202106
  2. XTANDI [Suspect]
     Active Substance: ENZALUTAMIDE
     Dosage: UNK UNK, UNKNOWN FREQ., AFTER BREAKFAST
     Route: 048
     Dates: start: 20210622
  3. XTANDI [Suspect]
     Active Substance: ENZALUTAMIDE
     Dosage: UNK UNK, UNKNOWN FREQ., AFTER LUNCH
     Route: 048
     Dates: start: 202106, end: 202106

REACTIONS (8)
  - Asthenia [Unknown]
  - Delusion [Unknown]
  - Dysuria [Unknown]
  - Arrhythmia [Unknown]
  - Constipation [Unknown]
  - Hallucination, auditory [Unknown]
  - Hallucination [Unknown]
  - Discomfort [Unknown]

NARRATIVE: CASE EVENT DATE: 202106
